FAERS Safety Report 21242505 (Version 1)
Quarter: 2022Q3

REPORT INFORMATION
  Report Type: Spontaneous
  Country: US (occurrence: None)
  Receive Date: 20220822
  Receipt Date: 20220822
  Transmission Date: 20221027
  Serious: Yes (Other)
  Sender: FDA-Public Use
  Company Number: None

PATIENT
  Age: 36 Year
  Sex: Female
  Weight: 65.25 kg

DRUGS (2)
  1. DEXTROAMPHET SACCHARAT, AMPHET ASPARTATE, DEXTROAMPHET SULFATE AND AMP [Suspect]
     Active Substance: AMPHETAMINE ASPARTATE\AMPHETAMINE SULFATE\DEXTROAMPHETAMINE SACCHARATE\DEXTROAMPHETAMINE SULFATE
     Indication: Attention deficit hyperactivity disorder
     Dosage: 10 MG DAILY ORAL?
     Route: 048
     Dates: start: 20220420, end: 20220616
  2. atorvastatin 10mg once daily [Concomitant]
     Dates: start: 20220331

REACTIONS (3)
  - Feeling jittery [None]
  - Product substitution issue [None]
  - Discomfort [None]

NARRATIVE: CASE EVENT DATE: 20220420
